FAERS Safety Report 23571906 (Version 2)
Quarter: 2024Q4

REPORT INFORMATION
  Report Type: Spontaneous
  Country: BR (occurrence: BR)
  Receive Date: 20240227
  Receipt Date: 20241119
  Transmission Date: 20250115
  Serious: Yes (Other)
  Sender: BAYER HEALTHCARE PHARMACEUTICALS INC.
  Company Number: BR-BAYER-2024A028332

PATIENT
  Sex: Male

DRUGS (2)
  1. NUBEQA [Suspect]
     Active Substance: DAROLUTAMIDE
     Dosage: UNK
  2. POLYMYXIN B [Suspect]
     Active Substance: POLYMYXIN B
     Indication: COVID-19
     Dosage: UNK

REACTIONS (3)
  - Hypokalaemia [None]
  - Renal tubular injury [None]
  - COVID-19 [None]
